FAERS Safety Report 7088622-3 (Version None)
Quarter: 2010Q4

REPORT INFORMATION
  Report Type: 
  Country: None (occurrence: None)
  Receive Date: 20101029
  Receipt Date: 20101025
  Transmission Date: 20110411
  Serious: Yes (Hospitalization)
  Sender: FDA-Public Use
  Company Number: DKLU1065875

PATIENT
  Age: 2 Month
  Sex: Male

DRUGS (6)
  1. SABRIL [Suspect]
     Indication: INFANTILE SPASMS
     Dosage: 200 MG MILIGRAM(S), 2 IN 1 D, ORAL
     Route: 048
     Dates: start: 20101008
  2. CLONAZEPAM [Concomitant]
  3. ZONEGRAN [Concomitant]
  4. PHENOBARBITAL TAB [Concomitant]
  5. VITAMIN D [Concomitant]
  6. RANITIDINE [Concomitant]

REACTIONS (2)
  - DEHYDRATION [None]
  - SOMNOLENCE [None]
